FAERS Safety Report 5492305-0 (Version None)
Quarter: 2007Q4

REPORT INFORMATION
  Report Type: 
  Country: None (occurrence: None)
  Receive Date: 20071022
  Receipt Date: 20070528
  Transmission Date: 20080405
  Serious: Yes (Other)
  Sender: FDA-Public Use
  Company Number: US-SANOFI-SYNTHELABO-A03200700331

PATIENT
  Sex: Female
  Weight: 68 kg

DRUGS (4)
  1. ACTOS [Concomitant]
     Indication: DIABETES MELLITUS
     Route: 048
  2. AMBIEN [Suspect]
     Indication: INSOMNIA
     Route: 048
  3. LIPITOR [Concomitant]
     Indication: DRUG USE FOR UNKNOWN INDICATION
     Route: 065
  4. ZOLOFT [Concomitant]
     Indication: DRUG USE FOR UNKNOWN INDICATION
     Route: 065

REACTIONS (5)
  - AMNESIA [None]
  - CONFUSIONAL STATE [None]
  - POST-TRAUMATIC STRESS DISORDER [None]
  - ROAD TRAFFIC ACCIDENT [None]
  - SOMNAMBULISM [None]
